FAERS Safety Report 8789930 (Version 1)
Quarter: 2012Q4

REPORT INFORMATION
  Report Type: 
  Country: US (occurrence: US)
  Receive Date: 20120914
  Receipt Date: 20120914
  Transmission Date: 20130627
  Serious: Yes (Hospitalization, Other)
  Sender: FDA-Public Use
  Company Number: US-ELI_LILLY_AND_COMPANY-US201209001020

PATIENT
  Sex: Male
  Weight: 87.08 kg

DRUGS (4)
  1. HUMULIN 30% REGULAR, 70% NPH [Suspect]
     Indication: DIABETES MELLITUS
     Dosage: 23 u, each morning
     Dates: start: 2008
  2. HUMULIN 30% REGULAR, 70% NPH [Suspect]
     Dosage: 18 u, each evening
  3. HUMULIN 30% REGULAR, 70% NPH [Suspect]
     Dosage: UNK, each morning
  4. METFORMIN [Concomitant]

REACTIONS (9)
  - Hypoglycaemic unconsciousness [Recovered/Resolved]
  - Road traffic accident [Recovering/Resolving]
  - Multiple fractures [Recovering/Resolving]
  - Concussion [Recovering/Resolving]
  - Blood glucose decreased [Recovered/Resolved]
  - Blood glucose increased [Unknown]
  - Epicondylitis [Recovered/Resolved]
  - Medical device complication [None]
  - Product quality issue [None]
